FAERS Safety Report 20024332 (Version 2)
Quarter: 2021Q4

REPORT INFORMATION
  Report Type: Spontaneous
  Country: US (occurrence: US)
  Receive Date: 20211102
  Receipt Date: 20211105
  Transmission Date: 20220303
  Serious: Yes (Other)
  Sender: FDA-Public Use
  Company Number: US-PFIZER INC-202101472347

PATIENT
  Age: 69 Year
  Sex: Male

DRUGS (3)
  1. SIROLIMUS [Suspect]
     Active Substance: SIROLIMUS
     Indication: Immunosuppressant drug therapy
     Dosage: UNK (PROLONGED THERAPY FOR OVER 7 YEARS)
  2. SIROLIMUS [Suspect]
     Active Substance: SIROLIMUS
     Indication: Heart transplant
  3. CYCLOSPORINE [Concomitant]
     Active Substance: CYCLOSPORINE
     Indication: Immunosuppressant drug therapy

REACTIONS (3)
  - Optic neuropathy [Recovering/Resolving]
  - Toxicity to various agents [Recovering/Resolving]
  - Off label use [Unknown]
